FAERS Safety Report 4444990-X (Version None)
Quarter: 2004Q3

REPORT INFORMATION
  Report Type: 
  Country: None (occurrence: None)
  Receive Date: 20040908
  Receipt Date: 20040908
  Transmission Date: 20050211
  Serious: Yes (Hospitalization)
  Sender: FDA-Public Use
  Company Number: None

PATIENT
  Age: 68 Year
  Sex: Male

DRUGS (8)
  1. WARFARIN SODIUM [Suspect]
     Indication: PULMONARY EMBOLISM
     Dosage: 5 MG M-W-F 2.5 MG TT SS
     Dates: start: 19980601
  2. CLARITIN [Concomitant]
  3. TRAMODOL [Concomitant]
  4. FOSAMAX [Concomitant]
  5. OSCAL [Concomitant]
  6. VITAMIN B-12 [Concomitant]
  7. FOLIC ACID [Concomitant]
  8. GUAIFENESIN [Concomitant]

REACTIONS (1)
  - RECTAL HAEMORRHAGE [None]
